FAERS Safety Report 24946114 (Version 1)
Quarter: 2025Q1

REPORT INFORMATION
  Report Type: Spontaneous
  Country: GB (occurrence: GB)
  Receive Date: 20250210
  Receipt Date: 20250210
  Transmission Date: 20250408
  Serious: Yes (Other)
  Sender: ALKEM
  Company Number: GB-ALKEM LABORATORIES LIMITED-GB-ALKEM-2024-25762

PATIENT
  Age: 73 Year
  Sex: Female

DRUGS (1)
  1. LINEZOLID [Suspect]
     Active Substance: LINEZOLID
     Indication: Osteomyelitis chronic
     Dosage: 600 MILLIGRAM, BID
     Route: 065

REACTIONS (1)
  - Neuropathy peripheral [Unknown]
